FAERS Safety Report 8134226-0 (Version None)
Quarter: 2012Q1

REPORT INFORMATION
  Report Type: 
  Country: None (occurrence: None)
  Receive Date: 20120209
  Receipt Date: 20120131
  Transmission Date: 20120608
  Serious: Yes (Hospitalization)
  Sender: FDA-Public Use
  Company Number: 1224701-2012-00001

PATIENT
  Age: 42 Year
  Sex: Female

DRUGS (1)
  1. PHOSLYRA [Suspect]
     Indication: RENAL FAILURE CHRONIC
     Dates: start: 20120129

REACTIONS (2)
  - SKIN INDURATION [None]
  - CELLULITIS [None]
